FAERS Safety Report 20691455 (Version 1)
Quarter: 2022Q2

REPORT INFORMATION
  Report Type: Spontaneous
  Country: US (occurrence: US)
  Receive Date: 20220408
  Receipt Date: 20220408
  Transmission Date: 20220721
  Serious: Yes (Hospitalization)
  Sender: FDA-Public Use
  Company Number: US-TEVA-2022-US-2024413

PATIENT
  Age: 78 Year
  Sex: Female

DRUGS (2)
  1. LORAZEPAM [Suspect]
     Active Substance: LORAZEPAM
     Indication: Anxiety
     Dosage: PRESCRIBED 1 MG UP TO THREE TIMES DAILY
     Route: 065
  2. LORAZEPAM [Suspect]
     Active Substance: LORAZEPAM
     Indication: Anxiety
     Dosage: 3 MILLIGRAM DAILY; 4-6 YEARS,PRESCRIBED 1 MG UP TO THREE TIMES DAILY
     Route: 065

REACTIONS (8)
  - Cardiac disorder [Unknown]
  - Drug ineffective [Unknown]
  - Feeling drunk [Unknown]
  - Cognitive disorder [Unknown]
  - Insomnia [Unknown]
  - Respiration abnormal [Unknown]
  - Anxiety [Unknown]
  - Fatigue [Unknown]

NARRATIVE: CASE EVENT DATE: 20220329
